FAERS Safety Report 9460231 (Version 1)
Quarter: 2013Q3

REPORT INFORMATION
  Report Type: Spontaneous
  Country: US (occurrence: US)
  Receive Date: 20130815
  Receipt Date: 20130815
  Transmission Date: 20140515
  Serious: Yes (Other)
  Sender: FDA-Public Use
  Company Number: US-TEVA-425428USA

PATIENT
  Age: 37 Year
  Sex: Female
  Weight: 58.11 kg

DRUGS (1)
  1. PARAGARD 380A [Suspect]
     Indication: CONTRACEPTION
     Dates: start: 20130801

REACTIONS (4)
  - Loss of consciousness [Unknown]
  - Device dislocation [Unknown]
  - Abdominal distension [Unknown]
  - Urinary tract disorder [Unknown]
